FAERS Safety Report 4326936-8 (Version None)
Quarter: 2004Q1

REPORT INFORMATION
  Report Type: 
  Country: None (occurrence: None)
  Receive Date: 20040330
  Receipt Date: 20040326
  Transmission Date: 20041129
  Serious: Yes (Hospitalization)
  Sender: FDA-Public Use
  Company Number: FR-ROCHE-363060

PATIENT
  Age: 77 Year
  Sex: Female

DRUGS (6)
  1. ROCEPHIN [Suspect]
     Indication: BRONCHITIS
     Route: 042
     Dates: start: 20040205, end: 20040214
  2. DIMETANE EXPECTORANT [Suspect]
     Indication: BRONCHITIS
     Route: 048
     Dates: start: 20040205, end: 20040214
  3. SERETIDE [Suspect]
     Indication: BRONCHITIS
     Route: 065
     Dates: start: 20040205, end: 20040214
  4. LEXOMIL [Concomitant]
     Route: 048
  5. SOLU-MEDROL [Concomitant]
     Indication: BRONCHITIS
     Route: 042
     Dates: start: 20040205, end: 20040209
  6. APROVEL [Concomitant]
     Route: 048

REACTIONS (3)
  - ERYTHEMA [None]
  - ERYTHEMA MULTIFORME [None]
  - PRURITUS [None]
